FAERS Safety Report 8825712 (Version 3)
Quarter: 2013Q3

REPORT INFORMATION
  Report Type: Spontaneous
  Country: JP (occurrence: JP)
  Receive Date: 20121004
  Receipt Date: 20130820
  Transmission Date: 20140515
  Serious: Yes (Hospitalization)
  Sender: FDA-Public Use
  Company Number: JP-PFIZER INC-2012244315

PATIENT
  Age: 63 Year
  Sex: Female

DRUGS (4)
  1. FAMOTIDINE [Suspect]
     Dosage: UNK
  2. ACETYLSALICYLIC ACID [Suspect]
     Indication: THROMBOSIS PROPHYLAXIS
     Dosage: UNK
  3. NORVASC [Concomitant]
     Dosage: UNK
     Route: 048
  4. CARDENALIN [Concomitant]
     Dosage: UNK
     Route: 048

REACTIONS (1)
  - Tubulointerstitial nephritis [Recovering/Resolving]
